FAERS Safety Report 8921630 (Version 1)
Quarter: 2012Q4

REPORT INFORMATION
  Report Type: 
  Country: US (occurrence: US)
  Receive Date: 20121121
  Receipt Date: 20121121
  Transmission Date: 20130627
  Serious: No
  Sender: FDA-Public Use
  Company Number: US-009507513-1211USA005713

PATIENT
  Sex: Male
  Weight: 81.63 kg

DRUGS (4)
  1. VICTRELIS [Suspect]
     Dosage: 800 mg (4 capsules), tid every 7-9 hours with food (begin at week 5)
     Route: 048
  2. PEGASYS [Suspect]
  3. RIBAVIRIN [Suspect]
  4. ZOLPIDEM TARTRATE [Concomitant]

REACTIONS (8)
  - Adverse event [Unknown]
  - Diverticulitis [Unknown]
  - Platelet count decreased [Unknown]
  - Anaemia [Unknown]
  - Fatigue [Unknown]
  - Dizziness [Unknown]
  - Paraesthesia [Unknown]
  - Weight decreased [Unknown]
